FAERS Safety Report 12755775 (Version 5)
Quarter: 2017Q3

REPORT INFORMATION
  Report Type: Report from Study
  Country: JP (occurrence: JP)
  Receive Date: 20160916
  Receipt Date: 20170811
  Transmission Date: 20171127
  Serious: Yes (Death, Hospitalization)
  Sender: FDA-Public Use
  Company Number: PHJP2016JP022967

PATIENT
  Age: 24 Year
  Sex: Male

DRUGS (20)
  1. CERTICAN [Suspect]
     Active Substance: EVEROLIMUS
     Dosage: 1.5 MG, QD
     Route: 048
     Dates: start: 20150320, end: 20150805
  2. NEORAL [Suspect]
     Active Substance: CYCLOSPORINE
     Dosage: 125 MG, UNK
     Route: 048
     Dates: start: 20150721, end: 20151117
  3. NEORAL [Suspect]
     Active Substance: CYCLOSPORINE
     Dosage: 125 MG, UNK
     Route: 048
     Dates: start: 20160413
  4. AMLODIPINE [Concomitant]
     Active Substance: AMLODIPINE BESYLATE
     Indication: PROPHYLAXIS
  5. CERTICAN [Suspect]
     Active Substance: EVEROLIMUS
     Dosage: 1.25 MG, QD
     Route: 048
     Dates: start: 20140718, end: 20150319
  6. CERTICAN [Suspect]
     Active Substance: EVEROLIMUS
     Dosage: 0.75 MG, QD
     Route: 048
     Dates: start: 20151030, end: 20151118
  7. FUROSEMIDE. [Suspect]
     Active Substance: FUROSEMIDE
     Indication: CARDIAC FAILURE
     Dosage: 40 MG, QD
     Route: 048
     Dates: start: 20160418, end: 20160421
  8. NEORAL [Suspect]
     Active Substance: CYCLOSPORINE
     Indication: HEART TRANSPLANT
     Dosage: 100 MG, UNK
     Route: 048
     Dates: start: 20150320, end: 20150720
  9. DIOVAN [Concomitant]
     Active Substance: VALSARTAN
     Indication: HYPERTENSION
     Dosage: 40 MG, UNK
     Route: 048
     Dates: start: 20060424
  10. DIOVAN [Concomitant]
     Active Substance: VALSARTAN
     Indication: PROPHYLAXIS
  11. CERTICAN [Suspect]
     Active Substance: EVEROLIMUS
     Dosage: 1 MG, QD
     Route: 048
     Dates: start: 20150918, end: 20151029
  12. NEORAL [Suspect]
     Active Substance: CYCLOSPORINE
     Dosage: 100 MG, UNK
     Route: 048
     Dates: start: 20151110, end: 20160412
  13. CERTICAN [Suspect]
     Active Substance: EVEROLIMUS
     Indication: HEART TRANSPLANT
     Dosage: 2 MG, QD
     Route: 048
     Dates: start: 20070712
  14. CERTICAN [Suspect]
     Active Substance: EVEROLIMUS
     Dosage: 1.5 MG, QD
     Route: 048
     Dates: start: 20140712, end: 20140717
  15. CERTICAN [Suspect]
     Active Substance: EVEROLIMUS
     Dosage: 1.25 MG, QD
     Route: 048
     Dates: start: 20150806, end: 20150917
  16. AMLODIPINE [Concomitant]
     Active Substance: AMLODIPINE BESYLATE
     Indication: HYPERTENSION
     Dosage: 5 MG, UNK
     Route: 048
     Dates: start: 20060822
  17. CERTICAN [Suspect]
     Active Substance: EVEROLIMUS
     Dosage: 0.75 MG, QD
     Route: 048
     Dates: start: 20160318
  18. FUROSEMIDE. [Suspect]
     Active Substance: FUROSEMIDE
     Dosage: 60 MG, QD
     Route: 042
     Dates: start: 20160422
  19. LOCHOL [Concomitant]
     Active Substance: FLUVASTATIN SODIUM
     Indication: HYPERLIPIDAEMIA
     Dosage: 20 MG, UNK
     Route: 048
     Dates: start: 20050908
  20. CERTICAN [Suspect]
     Active Substance: EVEROLIMUS
     Dosage: 0.5 MG, QD
     Route: 048
     Dates: start: 20151119, end: 20160317

REACTIONS (7)
  - Cardiac failure [Fatal]
  - Hyperuricaemia [Unknown]
  - Heart transplant rejection [Fatal]
  - Atrial tachycardia [Fatal]
  - Sudden cardiac death [Fatal]
  - Oedema [Fatal]
  - Diastolic dysfunction [Fatal]

NARRATIVE: CASE EVENT DATE: 20160317
